FAERS Safety Report 4263813-5 (Version None)
Quarter: 2004Q1

REPORT INFORMATION
  Report Type: 
  Country: None (occurrence: None)
  Receive Date: 20040105
  Receipt Date: 20040105
  Transmission Date: 20041129
  Serious: No
  Sender: FDA-Public Use
  Company Number: None

PATIENT
  Sex: Male
  Weight: 82.5547 kg

DRUGS (8)
  1. BEXTRA [Suspect]
     Indication: OSTEOARTHRITIS
     Dosage: 10 MG PO Q DAY
     Route: 048
  2. AMIODARONE HCL [Concomitant]
  3. LASIX [Concomitant]
  4. SINEMET [Concomitant]
  5. LEVOTHYROXINE SODIUM [Concomitant]
  6. LANOXIN [Concomitant]
  7. COREG [Concomitant]
  8. COUMADIN [Concomitant]

REACTIONS (1)
  - JOINT SWELLING [None]
